FAERS Safety Report 22334580 (Version 1)
Quarter: 2023Q2

REPORT INFORMATION
  Report Type: Spontaneous
  Country: US (occurrence: US)
  Receive Date: 20230517
  Receipt Date: 20230517
  Transmission Date: 20230721
  Serious: No
  Sender: FDA-Public Use
  Company Number: US-AMGEN-USASP2023081797

PATIENT
  Age: 42 Year
  Sex: Female

DRUGS (1)
  1. TAVNEOS [Suspect]
     Active Substance: AVACOPAN
     Indication: Granulomatosis with polyangiitis
     Dosage: 20 MILLIGRAM, TID (TAKE 2 CAPSULES (20 MG) BY MOUTH THREE TIMES DAILY WITH FOOD)
     Route: 048
     Dates: start: 20220705

REACTIONS (3)
  - Infection [Unknown]
  - Off label use [Unknown]
  - Diarrhoea [Unknown]

NARRATIVE: CASE EVENT DATE: 20220705
